FAERS Safety Report 6214915-5 (Version None)
Quarter: 2009Q2

REPORT INFORMATION
  Report Type: 
  Country: None (occurrence: None)
  Receive Date: 20090604
  Receipt Date: 20090504
  Transmission Date: 20091009
  Serious: No
  Sender: FDA-Public Use
  Company Number: US-BAYER-200921173NA

PATIENT
  Age: 53 Year
  Sex: Male

DRUGS (2)
  1. ULTRAVIST 300 [Suspect]
     Indication: COMPUTERISED TOMOGRAM ABDOMEN
     Dosage: TOTAL DAILY DOSE: 100 ML  UNIT DOSE: 100 ML
     Route: 042
     Dates: start: 20090420, end: 20090420
  2. REDI-CAT ORAL CONTAST [Concomitant]
     Route: 048
     Dates: start: 20090420, end: 20090420

REACTIONS (1)
  - URTICARIA [None]
